FAERS Safety Report 13949643 (Version 2)
Quarter: 2017Q4

REPORT INFORMATION
  Report Type: Spontaneous
  Country: US (occurrence: US)
  Receive Date: 20170908
  Receipt Date: 20171020
  Transmission Date: 20180320
  Serious: Yes (Other)
  Sender: FDA-Public Use
  Company Number: US-TARO-2017TAR00563

PATIENT
  Age: 60 Year
  Sex: Male
  Weight: 74.83 kg

DRUGS (6)
  1. CARBAMAZEPINE TABLETS USP 200 MG [Suspect]
     Active Substance: CARBAMAZEPINE
     Indication: HEADACHE
     Dosage: 200 MG, 3X/DAY
     Route: 048
     Dates: start: 20170609, end: 2017
  2. CENTRUM VITAMIN [Concomitant]
  3. GABAPENTIN. [Concomitant]
     Active Substance: GABAPENTIN
  4. VALIUM [Concomitant]
     Active Substance: DIAZEPAM
  5. CARBAMAZEPINE TABLETS USP 200 MG [Suspect]
     Active Substance: CARBAMAZEPINE
     Indication: HEAD INJURY
     Dosage: 200 MG, 4X/DAY
     Route: 048
     Dates: start: 2017, end: 201707
  6. ASPIRIN. [Concomitant]
     Active Substance: ASPIRIN

REACTIONS (32)
  - Arthritis infective [Not Recovered/Not Resolved]
  - Joint instability [Not Recovered/Not Resolved]
  - Therapy cessation [Recovered/Resolved]
  - Insomnia [Not Recovered/Not Resolved]
  - Muscle disorder [Not Recovered/Not Resolved]
  - Tongue ulceration [Not Recovered/Not Resolved]
  - Dyspnoea [Not Recovered/Not Resolved]
  - Gait disturbance [Not Recovered/Not Resolved]
  - White blood cell count decreased [Not Recovered/Not Resolved]
  - Arthropathy [Not Recovered/Not Resolved]
  - Pain [Unknown]
  - Stomatitis [Unknown]
  - Seizure [Unknown]
  - Suicidal ideation [Unknown]
  - Swollen tongue [Unknown]
  - Rash [Not Recovered/Not Resolved]
  - Off label use [Recovered/Resolved]
  - Bone pain [Not Recovered/Not Resolved]
  - Ear pain [Unknown]
  - Pyrexia [Not Recovered/Not Resolved]
  - Burning sensation [Unknown]
  - Asthenia [Not Recovered/Not Resolved]
  - Drug dose titration not performed [Recovered/Resolved]
  - Drug ineffective for unapproved indication [Not Recovered/Not Resolved]
  - Infection [Not Recovered/Not Resolved]
  - Lymphadenopathy [Not Recovered/Not Resolved]
  - Oropharyngeal pain [Not Recovered/Not Resolved]
  - Chest pain [Not Recovered/Not Resolved]
  - Arthralgia [Not Recovered/Not Resolved]
  - Fatigue [Not Recovered/Not Resolved]
  - Anger [Not Recovered/Not Resolved]
  - Bone disorder [Not Recovered/Not Resolved]

NARRATIVE: CASE EVENT DATE: 2017
